FAERS Safety Report 8214774-5 (Version None)
Quarter: 2012Q1

REPORT INFORMATION
  Report Type: 
  Country: None (occurrence: None)
  Receive Date: 20120316
  Receipt Date: 20120302
  Transmission Date: 20120608
  Serious: Yes (Other)
  Sender: FDA-Public Use
  Company Number: US-SANOFI-AVENTIS-2012SA014600

PATIENT
  Age: 60 Year
  Sex: Female
  Weight: 108.86 kg

DRUGS (2)
  1. PLAVIX [Suspect]
     Indication: CORONARY ARTERY OCCLUSION
     Route: 048
     Dates: start: 20120212, end: 20120228
  2. PLAVIX [Suspect]
     Indication: STENT PLACEMENT
     Route: 048
     Dates: start: 20120212, end: 20120228

REACTIONS (15)
  - RESPIRATORY TRACT OEDEMA [None]
  - OEDEMA PERIPHERAL [None]
  - ANGIOEDEMA [None]
  - ABDOMINAL PAIN UPPER [None]
  - DYSPEPSIA [None]
  - HYPERSENSITIVITY [None]
  - FACE OEDEMA [None]
  - PAIN [None]
  - SWOLLEN TONGUE [None]
  - DYSGEUSIA [None]
  - FLUID RETENTION [None]
  - HYPERTENSION [None]
  - GLOSSODYNIA [None]
  - WEIGHT INCREASED [None]
  - HEADACHE [None]
